FAERS Safety Report 11869709 (Version 2)
Quarter: 2016Q3

REPORT INFORMATION
  Report Type: Spontaneous
  Country: JP (occurrence: JP)
  Receive Date: 20151228
  Receipt Date: 20160713
  Transmission Date: 20161109
  Serious: Yes (Life-Threatening, Hospitalization)
  Sender: FDA-Public Use
  Company Number: JP-ROCHE-1684581

PATIENT
  Age: 77 Year
  Sex: Female
  Weight: 48 kg

DRUGS (6)
  1. MAINTATE [Concomitant]
     Active Substance: BISOPROLOL FUMARATE
     Dosage: DOSAGE IS UNCERTAIN.
     Route: 065
  2. COPEGUS [Suspect]
     Active Substance: RIBAVIRIN
     Indication: CHRONIC HEPATITIS C
     Dosage: THE FRACTIONATION DOSE FREQUENCY IS UNCERTAIN.
     Route: 048
     Dates: start: 20151026, end: 20151124
  3. AMLODIN [Concomitant]
     Active Substance: AMLODIPINE BESYLATE
     Dosage: DOSAGE IS UNCERTAIN.
     Route: 065
  4. SOVALDI [Suspect]
     Active Substance: SOFOSBUVIR
     Indication: CHRONIC HEPATITIS C
     Route: 048
     Dates: start: 20151026, end: 20151124
  5. TOCLASE [Concomitant]
     Active Substance: PENTOXYVERINE
     Dosage: DOSAGE IS UNCERTAIN.
     Route: 065
  6. DIART [Concomitant]
     Active Substance: AZOSEMIDE
     Dosage: DOSAGE IS UNCERTAIN.
     Route: 065

REACTIONS (5)
  - Anaemia [Recovered/Resolved]
  - Jaundice [Recovered/Resolved]
  - Hyperalbuminaemia [Recovered/Resolved]
  - Hepatic encephalopathy [Recovered/Resolved]
  - Renal impairment [Recovered/Resolved]

NARRATIVE: CASE EVENT DATE: 20151109
